FAERS Safety Report 19606523 (Version 1)
Quarter: 2021Q3

REPORT INFORMATION
  Report Type: Spontaneous
  Country: US (occurrence: US)
  Receive Date: 20210725
  Receipt Date: 20210725
  Transmission Date: 20211014
  Serious: No
  Sender: FDA-Public Use
  Company Number: NVSC2021US165265

PATIENT
  Sex: Female

DRUGS (1)
  1. MEKINIST [Suspect]
     Active Substance: TRAMETINIB DIMETHYL SULFOXIDE
     Indication: METASTASES TO BREAST
     Dosage: 2 MG, QD
     Route: 048
     Dates: start: 20210707

REACTIONS (3)
  - Somnolence [Unknown]
  - Fatigue [Unknown]
  - Cough [Unknown]
